FAERS Safety Report 4977583-6 (Version None)
Quarter: 2006Q2

REPORT INFORMATION
  Report Type: 
  Country: None (occurrence: None)
  Receive Date: 20060420
  Receipt Date: 20060329
  Transmission Date: 20061013
  Serious: Yes (Hospitalization)
  Sender: FDA-Public Use
  Company Number: DE-JNJFOC-20060307687

PATIENT
  Sex: Male
  Weight: 48.6 kg

DRUGS (2)
  1. CONCERTA [Suspect]
     Route: 048
  2. RITALIN [Concomitant]

REACTIONS (2)
  - IMMUNODEFICIENCY [None]
  - STOMATITIS [None]
